FAERS Safety Report 5074534-3 (Version None)
Quarter: 2006Q3

REPORT INFORMATION
  Report Type: 
  Country: None (occurrence: None)
  Receive Date: 20060808
  Receipt Date: 20060802
  Transmission Date: 20061208
  Serious: Yes (Hospitalization)
  Sender: FDA-Public Use
  Company Number: DE-MERCK-0608DEU00066

PATIENT
  Age: 33 Year
  Sex: Male

DRUGS (2)
  1. TRUSOPT [Suspect]
     Indication: EYE OEDEMA
     Route: 047
     Dates: start: 20060725, end: 20060728
  2. MILK THISTLE [Concomitant]
     Route: 065

REACTIONS (2)
  - MENINGITIS [None]
  - PARESIS [None]
